FAERS Safety Report 19012945 (Version 1)
Quarter: 2021Q1

REPORT INFORMATION
  Report Type: Spontaneous
  Country: US (occurrence: US)
  Receive Date: 20210316
  Receipt Date: 20210316
  Transmission Date: 20210420
  Serious: Yes (Hospitalization)
  Sender: FDA-Public Use
  Company Number: None

PATIENT
  Age: 69 Year
  Sex: Male
  Weight: 110.6 kg

DRUGS (6)
  1. SIMVASTATIN 20 MG PO DAILY [Concomitant]
  2. HERBAL NOS [Suspect]
     Active Substance: HERBALS
     Dates: start: 20201222, end: 20201222
  3. METFORMIN 500 MG PO BID [Concomitant]
  4. AMLODIPINE 10 MG PO DAILY [Concomitant]
  5. HYZAAR 100 MG/25 MG PO DAILY [Concomitant]
  6. BAMLANIVIMAB. [Suspect]
     Active Substance: BAMLANIVIMAB
     Indication: COVID-19
     Route: 042
     Dates: start: 20201222, end: 20201222

REACTIONS (2)
  - Mental status changes [None]
  - Phytotherapy [None]

NARRATIVE: CASE EVENT DATE: 20201222
